FAERS Safety Report 25165508 (Version 3)
Quarter: 2025Q2

REPORT INFORMATION
  Report Type: Spontaneous
  Country: US (occurrence: US)
  Receive Date: 20250407
  Receipt Date: 20250425
  Transmission Date: 20250716
  Serious: No
  Sender: AMGEN
  Company Number: US-AMGEN-USASP2025063037

PATIENT
  Age: 70 Year
  Sex: Male

DRUGS (10)
  1. REPATHA [Suspect]
     Active Substance: EVOLOCUMAB
     Indication: Blood cholesterol increased
     Dosage: 140 MILLIGRAM, Q2WK
     Route: 065
  2. REPATHA [Suspect]
     Active Substance: EVOLOCUMAB
     Route: 065
  3. REPATHA [Suspect]
     Active Substance: EVOLOCUMAB
     Route: 065
  4. REPATHA [Suspect]
     Active Substance: EVOLOCUMAB
     Route: 065
  5. REPATHA [Suspect]
     Active Substance: EVOLOCUMAB
     Route: 065
  6. REPATHA [Suspect]
     Active Substance: EVOLOCUMAB
     Route: 065
  7. REPATHA [Suspect]
     Active Substance: EVOLOCUMAB
     Route: 065
  8. REPATHA [Suspect]
     Active Substance: EVOLOCUMAB
     Route: 065
  9. REPATHA [Suspect]
     Active Substance: EVOLOCUMAB
     Route: 065
  10. AIMOVIG [Suspect]
     Active Substance: ERENUMAB-AOOE
     Indication: Product used for unknown indication
     Route: 065

REACTIONS (3)
  - Low density lipoprotein increased [Unknown]
  - Product dose omission issue [Unknown]
  - Device difficult to use [Unknown]

NARRATIVE: CASE EVENT DATE: 20250316
